FAERS Safety Report 9852702 (Version 2)
Quarter: 2014Q1

REPORT INFORMATION
  Report Type: Spontaneous
  Country: US (occurrence: US)
  Receive Date: 20140129
  Receipt Date: 20140204
  Transmission Date: 20141002
  Serious: No
  Sender: FDA-Public Use
  Company Number: US-BAYER-2014-009383

PATIENT
  Age: 59 Year
  Sex: Female

DRUGS (5)
  1. ALEVE TABLET [Suspect]
     Indication: BACK PAIN
     Dosage: 1 DF, OTHER FREQUENCY
     Route: 048
     Dates: start: 20140115
  2. MAGNESIUM [Concomitant]
  3. CALCIUM [Concomitant]
  4. VITAMIN C [Concomitant]
     Dosage: 5000 MG, UNK
  5. LEXAPRO [Concomitant]

REACTIONS (3)
  - Hypoaesthesia oral [Not Recovered/Not Resolved]
  - Nasal congestion [Not Recovered/Not Resolved]
  - Inappropriate schedule of drug administration [None]
